FAERS Safety Report 10396562 (Version 2)
Quarter: 2014Q3

REPORT INFORMATION
  Report Type: Spontaneous
  Country: JP (occurrence: None)
  Receive Date: 20140818
  Receipt Date: 20140827
  Transmission Date: 20150326
  Serious: Yes (Hospitalization)
  Sender: FDA-Public Use
  Company Number: SP07988

PATIENT
  Sex: Female

DRUGS (2)
  1. BARIUM SULFATE [Concomitant]
     Active Substance: BARIUM SULFATE
  2. MOVIPREP [Suspect]
     Active Substance: ASCORBIC ACID\POLYETHYLENE GLYCOL 3350\POTASSIUM CHLORIDE\SODIUM ASCORBATE\SODIUM CHLORIDE\SODIUM SULFATE
     Indication: BOWEL PREPARATION
     Route: 048
     Dates: start: 20140617, end: 20140617

REACTIONS (3)
  - Vomiting [None]
  - Constipation [None]
  - Feeling abnormal [None]

NARRATIVE: CASE EVENT DATE: 20140617
